FAERS Safety Report 13827296 (Version 1)
Quarter: 2017Q3

REPORT INFORMATION
  Report Type: Spontaneous
  Country: US (occurrence: US)
  Receive Date: 20170802
  Receipt Date: 20170802
  Transmission Date: 20171127
  Serious: No
  Sender: FDA-Public Use
  Company Number: US-ROCHE-636257

PATIENT
  Age: 89 Year
  Sex: Female
  Weight: 82.7 kg

DRUGS (3)
  1. XALATAN [Concomitant]
     Active Substance: LATANOPROST
     Indication: GLAUCOMA
     Route: 065
  2. PRILOSEC [Concomitant]
     Active Substance: OMEPRAZOLE MAGNESIUM
     Route: 065
  3. BONIVA [Suspect]
     Active Substance: IBANDRONATE SODIUM
     Indication: UPPER LIMB FRACTURE
     Dosage: THERAPY ONGOING FOR ABOUT 3.5 TO 4 YEARS.
     Route: 048

REACTIONS (5)
  - Dysphagia [Unknown]
  - Poor quality sleep [Unknown]
  - No adverse event [Unknown]
  - Chest pain [Not Recovered/Not Resolved]
  - Wrong technique in product usage process [Unknown]

NARRATIVE: CASE EVENT DATE: 20090601
